FAERS Safety Report 19080233 (Version 6)
Quarter: 2025Q3

REPORT INFORMATION
  Report Type: Report from Study
  Country: EU (occurrence: EU)
  Receive Date: 20210401
  Receipt Date: 20250702
  Transmission Date: 20251021
  Serious: Yes (Other)
  Sender: AUROBINDO
  Company Number: EU-009507513-2103SWE005680

PATIENT
  Age: 70 Year
  Sex: Male
  Weight: 75 kg

DRUGS (25)
  1. OMEPRAZOLE [Interacting]
     Active Substance: OMEPRAZOLE
     Indication: Product used for unknown indication
     Route: 065
  2. EFAVIRENZ [Interacting]
     Active Substance: EFAVIRENZ
     Indication: HIV infection
     Dosage: 600 MILLIGRAM, ONCE A DAY
     Route: 048
  3. ABACAVIR\LAMIVUDINE [Suspect]
     Active Substance: ABACAVIR\LAMIVUDINE
     Indication: HIV infection
     Dosage: 300/600 MG ONCE A DAY (300/600 MG 1X1)
     Route: 065
  4. CANDESARTAN CILEXETIL [Interacting]
     Active Substance: CANDESARTAN CILEXETIL
     Indication: Product used for unknown indication
     Route: 065
  5. CIPRALEX [Interacting]
     Active Substance: ESCITALOPRAM OXALATE
     Indication: Product used for unknown indication
     Route: 065
  6. EMTRICITABINE\TENOFOVIR DISOPROXIL FUMARATE [Interacting]
     Active Substance: EMTRICITABINE\TENOFOVIR DISOPROXIL FUMARATE
     Indication: HIV infection
     Route: 065
  7. FOSAMPRENAVIR CALCIUM [Suspect]
     Active Substance: FOSAMPRENAVIR CALCIUM
     Indication: HIV infection
     Dosage: 700 MILLIGRAM, TWO TIMES A DAY (1400 MILLIGRAM DAILY)
     Route: 065
  8. GABAPENTIN [Interacting]
     Active Substance: GABAPENTIN
     Indication: Product used for unknown indication
     Route: 065
  9. PREDNISONE [Interacting]
     Active Substance: PREDNISONE
     Indication: Product used for unknown indication
     Route: 065
  10. PRAVACHOL [Interacting]
     Active Substance: PRAVASTATIN SODIUM
     Indication: Product used for unknown indication
     Route: 065
  11. PLAQUENIL [Suspect]
     Active Substance: HYDROXYCHLOROQUINE SULFATE
     Indication: Product used for unknown indication
     Route: 065
  12. RITONAVIR [Suspect]
     Active Substance: RITONAVIR
     Indication: HIV infection
     Dosage: 100 MILLIGRAM, ONCE A DAY
     Route: 065
  13. MIRTAZAPINE [Suspect]
     Active Substance: MIRTAZAPINE
     Indication: Product used for unknown indication
     Route: 048
  14. ASPIRIN [Interacting]
     Active Substance: ASPIRIN
     Indication: Product used for unknown indication
     Route: 065
  15. METOPROLOL TARTRATE [Interacting]
     Active Substance: METOPROLOL TARTRATE
     Indication: Product used for unknown indication
     Route: 065
  16. CYKLOKAPRON [Concomitant]
     Active Substance: TRANEXAMIC ACID
     Indication: Product used for unknown indication
     Route: 065
  17. TRAMADOL HYDROCHLORIDE [Concomitant]
     Active Substance: TRAMADOL HYDROCHLORIDE
     Indication: Product used for unknown indication
     Route: 065
  18. RAMIPRIL [Concomitant]
     Active Substance: RAMIPRIL
     Indication: Product used for unknown indication
     Route: 065
  19. Furix [Concomitant]
     Indication: Product used for unknown indication
     Route: 065
  20. ACETAMINOPHEN [Concomitant]
     Active Substance: ACETAMINOPHEN
     Indication: Product used for unknown indication
     Route: 065
  21. ISOPHANE INSULIN [Concomitant]
     Active Substance: INSULIN NOS
     Indication: Product used for unknown indication
     Route: 065
  22. REPAGLINIDE [Concomitant]
     Active Substance: REPAGLINIDE
     Indication: Product used for unknown indication
     Route: 065
  23. NITROLINGUAL [Concomitant]
     Active Substance: NITROGLYCERIN
     Indication: Product used for unknown indication
     Route: 065
  24. Nitromex [Concomitant]
     Indication: Product used for unknown indication
     Route: 065
  25. HYDROCORTISONE\MICONAZOLE NITRATE [Concomitant]
     Active Substance: HYDROCORTISONE\MICONAZOLE NITRATE
     Indication: Product used for unknown indication
     Route: 065

REACTIONS (5)
  - Diabetes mellitus [Unknown]
  - Fat redistribution [Unknown]
  - Sensory loss [Unknown]
  - Labelled drug-drug interaction issue [Unknown]
  - Potentiating drug interaction [Unknown]
